FAERS Safety Report 18238365 (Version 7)
Quarter: 2023Q2

REPORT INFORMATION
  Report Type: Spontaneous
  Country: US (occurrence: US)
  Receive Date: 20200907
  Receipt Date: 20230427
  Transmission Date: 20230721
  Serious: Yes (Other)
  Sender: FDA-Public Use
  Company Number: US-PFIZER INC-2020343138

PATIENT
  Age: 71 Year
  Sex: Male
  Weight: 92.99 kg

DRUGS (6)
  1. VYNDAMAX [Suspect]
     Active Substance: TAFAMIDIS
     Indication: Cardiac amyloidosis
     Dosage: 61 MG, 1X/DAY
     Route: 048
     Dates: start: 202006
  2. AMLODIPINE [Concomitant]
     Active Substance: AMLODIPINE BESYLATE
     Indication: Hypertension
     Dosage: 2.5 MG, DAILY
     Dates: start: 2014
  3. ELIQUIS [Concomitant]
     Active Substance: APIXABAN
     Indication: Atrial fibrillation
     Dosage: 5 MG, 2X/DAY
     Dates: start: 2016
  4. LASIX [Concomitant]
     Active Substance: FUROSEMIDE
     Indication: Cardiomyopathy
     Dosage: 20 MG, DAILY
     Dates: start: 2017
  5. LOSARTAN [Concomitant]
     Active Substance: LOSARTAN
     Indication: Cardiomyopathy
     Dosage: 50 MG, DAILY
     Dates: start: 2014
  6. METOPROLOL [Concomitant]
     Active Substance: METOPROLOL
     Indication: Atrial fibrillation
     Dosage: 25 MG, 2X/DAY

REACTIONS (22)
  - Kidney infection [Unknown]
  - Drug ineffective [Unknown]
  - Malaise [Not Recovered/Not Resolved]
  - Dyspnoea [Not Recovered/Not Resolved]
  - Headache [Not Recovered/Not Resolved]
  - Abdominal distension [Not Recovered/Not Resolved]
  - Abdominal pain upper [Not Recovered/Not Resolved]
  - Dizziness [Not Recovered/Not Resolved]
  - Arthralgia [Not Recovered/Not Resolved]
  - Pain in extremity [Not Recovered/Not Resolved]
  - Gait disturbance [Not Recovered/Not Resolved]
  - Balance disorder [Not Recovered/Not Resolved]
  - Glossitis [Unknown]
  - Somnolence [Recovering/Resolving]
  - Fatigue [Unknown]
  - Vision blurred [Unknown]
  - Body height decreased [Unknown]
  - Weight decreased [Unknown]
  - Abdominal distension [Recovering/Resolving]
  - Muscular weakness [Recovering/Resolving]
  - Cardiac disorder [Unknown]
  - Lung disorder [Unknown]

NARRATIVE: CASE EVENT DATE: 20200101
